FAERS Safety Report 9341091 (Version 1)
Quarter: 2013Q2

REPORT INFORMATION
  Report Type: Report from Study
  Country: US (occurrence: US)
  Receive Date: 20130610
  Receipt Date: 20130610
  Transmission Date: 20140414
  Serious: Yes (Other)
  Sender: FDA-Public Use
  Company Number: US-ASTRAZENECA-2013SE39868

PATIENT
  Sex: Male
  Weight: 93.4 kg

DRUGS (19)
  1. NEXIUM [Suspect]
     Indication: GASTROOESOPHAGEAL REFLUX DISEASE
     Route: 048
     Dates: end: 2012
  2. NEXIUM [Suspect]
     Indication: BARRETT^S OESOPHAGUS
     Route: 048
     Dates: end: 2012
  3. OMEPRAZOLE [Suspect]
     Indication: GASTROOESOPHAGEAL REFLUX DISEASE
     Route: 048
     Dates: start: 2012
  4. OMEPRAZOLE [Suspect]
     Indication: BARRETT^S OESOPHAGUS
     Route: 048
     Dates: start: 2012
  5. OMEPRAZOLE [Suspect]
     Indication: GASTROOESOPHAGEAL REFLUX DISEASE
     Route: 048
     Dates: start: 2013
  6. OMEPRAZOLE [Suspect]
     Indication: BARRETT^S OESOPHAGUS
     Route: 048
     Dates: start: 2013
  7. LISINOPRIL [Suspect]
     Indication: CARDIAC DISORDER
     Route: 048
  8. HYDROCHLOROTHIAZIDE [Suspect]
     Indication: CARDIAC DISORDER
     Route: 065
  9. MORPHINE SULFATE [Concomitant]
     Indication: PAIN
     Dosage: TIME RELEASE
  10. MORPHINE SULFATE [Concomitant]
     Indication: PAIN
     Dosage: INSTANT RELEASE
  11. TRAZADONE [Concomitant]
     Indication: SLEEP DISORDER
  12. ALPRAZALAM [Concomitant]
     Indication: ANXIETY
  13. METHADONE [Concomitant]
  14. METHADONE [Concomitant]
  15. PROCARDIA [Concomitant]
     Indication: CARDIAC VALVE DISEASE
     Dosage: GENERIC
  16. FLEXERIL [Concomitant]
     Indication: MUSCLE SPASMS
  17. FLOMAX EXTENDED RELEASE [Concomitant]
  18. GABAPENTIN [Concomitant]
     Dates: start: 20121002, end: 20130314
  19. CLONAZEPAM [Concomitant]
     Indication: NERVOUS SYSTEM DISORDER
     Dates: start: 20120517, end: 20120618

REACTIONS (26)
  - Thrombocytopenia [Unknown]
  - Leukopenia [Unknown]
  - Pancytopenia [Unknown]
  - Amnesia [Unknown]
  - Renal failure chronic [Unknown]
  - Diarrhoea [Unknown]
  - Vision blurred [Unknown]
  - Abdominal pain upper [Unknown]
  - Liver disorder [Unknown]
  - Gastrooesophageal reflux disease [Unknown]
  - Anaemia [Unknown]
  - Gastrooesophageal reflux disease [Unknown]
  - Sleep disorder due to a general medical condition [Unknown]
  - Essential hypertension [Unknown]
  - Dysarthria [Unknown]
  - Cardiac valve disease [Unknown]
  - Urinary retention [Unknown]
  - Osteoarthritis [Unknown]
  - Impaired fasting glucose [Unknown]
  - Anxiety [Unknown]
  - Back pain [Unknown]
  - Therapeutic response unexpected [Unknown]
  - Muscle spasms [Unknown]
  - Nervousness [Unknown]
  - Intentional drug misuse [Unknown]
  - Drug ineffective [Unknown]
